FAERS Safety Report 21760407 (Version 1)
Quarter: 2022Q4

REPORT INFORMATION
  Report Type: Spontaneous
  Country: NL (occurrence: None)
  Receive Date: 20221221
  Receipt Date: 20221221
  Transmission Date: 20230112
  Serious: Yes (Death, Other)
  Sender: FDA-Public Use
  Company Number: NL-ROCHE-3242939

PATIENT
  Age: 49 Year
  Sex: Male

DRUGS (3)
  1. ATEZOLIZUMAB [Suspect]
     Active Substance: ATEZOLIZUMAB
     Indication: Anal cancer
     Route: 041
     Dates: start: 20221101, end: 20221212
  2. OXYCODONE [Concomitant]
     Active Substance: OXYCODONE
     Route: 042
     Dates: start: 20221212, end: 20221213
  3. MIDAZOLAM [Concomitant]
     Active Substance: MIDAZOLAM
     Indication: Agitation
     Dosage: BOLUS
     Route: 058
     Dates: start: 20221212, end: 20221213

REACTIONS (4)
  - Ascites [Fatal]
  - Disease progression [Fatal]
  - Renal failure [Unknown]
  - Drug ineffective [Unknown]

NARRATIVE: CASE EVENT DATE: 20221118
